FAERS Safety Report 10565102 (Version 2)
Quarter: 2014Q4

REPORT INFORMATION
  Report Type: Spontaneous
  Country: US (occurrence: US)
  Receive Date: 20141105
  Receipt Date: 20141215
  Transmission Date: 20150529
  Serious: No
  Sender: FDA-Public Use
  Company Number: US-BIOGENIDEC-2014BI111906

PATIENT
  Age: 65 Year
  Sex: Female

DRUGS (17)
  1. FIBER [Concomitant]
     Active Substance: PSYLLIUM HUSK
  2. SELENIUM [Concomitant]
     Active Substance: SELENIUM
  3. ALPRAZOLAM. [Concomitant]
     Active Substance: ALPRAZOLAM
  4. SYNTHROID [Concomitant]
     Active Substance: LEVOTHYROXINE SODIUM
     Indication: PRODUCT USED FOR UNKNOWN INDICATION
  5. ALEVE [Concomitant]
     Active Substance: NAPROXEN SODIUM
  6. ZOLOFT [Concomitant]
     Active Substance: SERTRALINE HYDROCHLORIDE
  7. ASPIRIN. [Concomitant]
     Active Substance: ASPIRIN
  8. VALIUM [Concomitant]
     Active Substance: DIAZEPAM
  9. CALCIUM [Concomitant]
     Active Substance: CALCIUM
  10. FOLIC ACID. [Concomitant]
     Active Substance: FOLIC ACID
  11. LUTCIN [Concomitant]
  12. MIRAPEX [Concomitant]
     Active Substance: PRAMIPEXOLE DIHYDROCHLORIDE
  13. TYLENOL [Concomitant]
     Active Substance: ACETAMINOPHEN
  14. TECFIDERA [Suspect]
     Active Substance: DIMETHYL FUMARATE
     Indication: MULTIPLE SCLEROSIS
     Route: 048
     Dates: start: 20140603
  15. GABAPENTIN. [Concomitant]
     Active Substance: GABAPENTIN
  16. BLACK COHOSH [Concomitant]
     Active Substance: BLACK COHOSH
  17. LEVOTHROID [Concomitant]
     Active Substance: LEVOTHYROXINE SODIUM

REACTIONS (3)
  - Chills [Recovered/Resolved]
  - Headache [Recovered/Resolved]
  - Pain [Recovered/Resolved]

NARRATIVE: CASE EVENT DATE: 20141021
